FAERS Safety Report 14107389 (Version 1)
Quarter: 2017Q4

REPORT INFORMATION
  Report Type: Spontaneous
  Country: US (occurrence: None)
  Receive Date: 20171019
  Receipt Date: 20171019
  Transmission Date: 20180321
  Serious: Yes (Hospitalization)
  Sender: FDA-Public Use
  Company Number: None

PATIENT
  Age: 15 Year
  Sex: Male
  Weight: 68.4 kg

DRUGS (7)
  1. CYTARABINE. [Suspect]
     Active Substance: CYTARABINE
     Dates: end: 20171004
  2. HYDROCORTISONE. [Suspect]
     Active Substance: HYDROCORTISONE
     Dates: end: 20171004
  3. DEXAMETHASONE. [Suspect]
     Active Substance: DEXAMETHASONE
     Dates: end: 20171008
  4. METHOTREXATE. [Suspect]
     Active Substance: METHOTREXATE
     Dates: end: 20171004
  5. MITOXANTRONE HYDROCHLORIDE. [Suspect]
     Active Substance: MITOXANTRONE HYDROCHLORIDE
     Dates: end: 20170916
  6. ONCASPAR [Suspect]
     Active Substance: PEGASPARGASE
     Dosage: 8100 UNIT
     Dates: end: 20171006
  7. VINCRISTINE SULFATE. [Suspect]
     Active Substance: VINCRISTINE SULFATE
     Dates: end: 20171006

REACTIONS (11)
  - Hemiparesis [None]
  - Respiratory muscle weakness [None]
  - Flatulence [None]
  - Sensory loss [None]
  - Myelopathy [None]
  - Guillain-Barre syndrome [None]
  - Constipation [None]
  - Pyrexia [None]
  - Abdominal pain [None]
  - Paralysis [None]
  - Toxicity to various agents [None]

NARRATIVE: CASE EVENT DATE: 20171012
